FAERS Safety Report 12804862 (Version 1)
Quarter: 2016Q4

REPORT INFORMATION
  Report Type: Spontaneous
  Country: CA (occurrence: CA)
  Receive Date: 20161003
  Receipt Date: 20161003
  Transmission Date: 20170207
  Serious: Yes (Death, Other)
  Sender: FDA-Public Use
  Company Number: CA-BAXTER-2016BAX049669

PATIENT
  Age: 20 Month
  Sex: Male

DRUGS (7)
  1. ETOPOSIDE. [Suspect]
     Active Substance: ETOPOSIDE
     Indication: RHABDOID TUMOUR
     Route: 065
  2. PROCYTOX (CYCLOPHOSPHAMIDE) 2000MG/VIAL [Suspect]
     Active Substance: CYCLOPHOSPHAMIDE
     Indication: OFF LABEL USE
  3. CISPLATIN. [Suspect]
     Active Substance: CISPLATIN
     Indication: RHABDOID TUMOUR
     Route: 065
  4. VINCRISTINE [Suspect]
     Active Substance: VINCRISTINE
     Indication: RHABDOID TUMOUR
     Route: 065
  5. METHOTREXATE. [Suspect]
     Active Substance: METHOTREXATE
     Indication: RHABDOID TUMOUR
     Route: 042
  6. GRANULOCYTE COLONY STIMULATING FACTOR [Concomitant]
     Active Substance: GRANULOCYTE COLONY-STIMULATING FACTOR NOS
     Indication: PROPHYLAXIS
     Route: 065
  7. PROCYTOX (CYCLOPHOSPHAMIDE) 2000MG/VIAL [Suspect]
     Active Substance: CYCLOPHOSPHAMIDE
     Indication: RHABDOID TUMOUR
     Route: 065

REACTIONS (9)
  - Hepatic candidiasis [Fatal]
  - Hepatic necrosis [Fatal]
  - Hypogammaglobulinaemia [Fatal]
  - Rhinorrhoea [Fatal]
  - Cystitis haemorrhagic [Fatal]
  - Hypotension [Fatal]
  - Diarrhoea [Fatal]
  - Neutropenia [Fatal]
  - Tachycardia [Fatal]
